FAERS Safety Report 9335694 (Version 1)
Quarter: 2013Q2

REPORT INFORMATION
  Report Type: Spontaneous
  Country: US (occurrence: US)
  Receive Date: 20130605
  Receipt Date: 20130605
  Transmission Date: 20140414
  Serious: Yes (Other)
  Sender: FDA-Public Use
  Company Number: US-PFIZER INC-2013167748

PATIENT
  Sex: Male

DRUGS (2)
  1. ADVIL [Suspect]
     Dosage: UNK
  2. ADVIL PM [Suspect]
     Dosage: UNK

REACTIONS (2)
  - Abscess intestinal [Unknown]
  - Large intestinal haemorrhage [Unknown]
